FAERS Safety Report 16397131 (Version 1)
Quarter: 2019Q2

REPORT INFORMATION
  Report Type: Spontaneous
  Country: US (occurrence: US)
  Receive Date: 20190606
  Receipt Date: 20190606
  Transmission Date: 20190711
  Serious: Yes (Other)
  Sender: FDA-Public Use
  Company Number: US-SUN PHARMACEUTICAL INDUSTRIES LTD-2019R1-209659

PATIENT
  Age: 9 Month
  Sex: Male

DRUGS (1)
  1. FLECAINIDE [Suspect]
     Active Substance: FLECAINIDE
     Indication: PRODUCT USED FOR UNKNOWN INDICATION
     Dosage: 3.75 ML
     Route: 065

REACTIONS (9)
  - Product dispensing error [Unknown]
  - Cyanosis [Unknown]
  - Atrial tachycardia [Unknown]
  - Overdose [Unknown]
  - Pleural effusion [Unknown]
  - Respiratory failure [Unknown]
  - Respiratory tract oedema [Unknown]
  - Feeding disorder [Unknown]
  - Device malfunction [Unknown]
